FAERS Safety Report 22147227 (Version 1)
Quarter: 2023Q1

REPORT INFORMATION
  Report Type: Spontaneous
  Country: US (occurrence: None)
  Receive Date: 20230327
  Receipt Date: 20230327
  Transmission Date: 20230418
  Serious: Yes (Life-Threatening)
  Sender: FDA-Public Use
  Company Number: None

PATIENT
  Age: 51 Year
  Sex: Male
  Weight: 115.67 kg

DRUGS (13)
  1. FLECAINIDE ACETATE [Suspect]
     Active Substance: FLECAINIDE ACETATE
     Indication: Atrial fibrillation
     Dosage: FREQUENCY : TWICE A DAY;?
     Route: 048
     Dates: start: 20221222, end: 20221231
  2. FLECAINIDE ACETATE [Suspect]
     Active Substance: FLECAINIDE ACETATE
     Indication: Ventricular fibrillation
  3. LOSARTAN [Concomitant]
     Active Substance: LOSARTAN
  4. aterelol [Concomitant]
  5. GABAPENTIN [Concomitant]
     Active Substance: GABAPENTIN
  6. CYCLOBENZAPRINE [Concomitant]
     Active Substance: CYCLOBENZAPRINE
  7. ASPIRIN [Concomitant]
     Active Substance: ASPIRIN
  8. TYLENOL [Concomitant]
     Active Substance: ACETAMINOPHEN
  9. benadryl [Concomitant]
  10. AMBIEN [Concomitant]
     Active Substance: ZOLPIDEM TARTRATE
  11. HERBALS\MITRAGYNINE [Concomitant]
     Active Substance: HERBALS\MITRAGYNINE
  12. ducosate [Concomitant]
  13. EMETROL [Concomitant]
     Active Substance: DEXTROSE\FRUCTOSE\PHOSPHORIC ACID

REACTIONS (6)
  - Drug ineffective [None]
  - Product substitution issue [None]
  - Feeling abnormal [None]
  - Dyspnoea [None]
  - Dizziness [None]
  - Head discomfort [None]

NARRATIVE: CASE EVENT DATE: 20221224
